FAERS Safety Report 20169054 (Version 1)
Quarter: 2021Q4

REPORT INFORMATION
  Report Type: Spontaneous
  Country: US (occurrence: US)
  Receive Date: 20211210
  Receipt Date: 20211210
  Transmission Date: 20220303
  Serious: Yes (Hospitalization)
  Sender: FDA-Public Use
  Company Number: US-STRIDES ARCOLAB LIMITED-2021SP030881

PATIENT
  Age: 73 Year
  Sex: Male

DRUGS (3)
  1. CYCLOSPORINE [Suspect]
     Active Substance: CYCLOSPORINE
     Indication: Bone marrow transplant
     Dosage: UNK
     Route: 065
  2. PREDNISOLONE [Suspect]
     Active Substance: PREDNISOLONE
     Indication: Bone marrow transplant
     Dosage: UNK
     Route: 065
  3. RUXOLITINIB [Suspect]
     Active Substance: RUXOLITINIB
     Indication: Bone marrow transplant
     Dosage: UNK
     Route: 065

REACTIONS (4)
  - Haematochezia [Unknown]
  - Iron deficiency anaemia [Unknown]
  - Cytomegalovirus oesophagitis [Unknown]
  - Cytomegalovirus gastrointestinal infection [Unknown]
